FAERS Safety Report 11131198 (Version 3)
Quarter: 2015Q2

REPORT INFORMATION
  Report Type: Spontaneous
  Country: JP (occurrence: JP)
  Receive Date: 20150522
  Receipt Date: 20150616
  Transmission Date: 20150821
  Serious: Yes (Death, Life-Threatening)
  Sender: FDA-Public Use
  Company Number: JP-SHIONOGI, INC-2015000596

PATIENT
  Age: 73 Year
  Sex: Male
  Weight: 54.4 kg

DRUGS (6)
  1. FUNGUARD [Concomitant]
     Active Substance: MICAFUNGIN SODIUM
     Indication: PNEUMONIA
     Dosage: 75 MG, QD
     Route: 041
     Dates: start: 20150223, end: 20150224
  2. PRECEDEX [Concomitant]
     Active Substance: DEXMEDETOMIDINE HYDROCHLORIDE
     Indication: SEDATIVE THERAPY
     Dosage: 16 ?G, 1 PER 1 HOUR, TID
     Route: 041
     Dates: start: 20150223, end: 20150302
  3. ELASPOL [Concomitant]
     Active Substance: SIVELESTAT SODIUM
     Indication: PNEUMONIA
     Dosage: 300 MG, QD
     Route: 041
     Dates: start: 20150223, end: 20150226
  4. FINIBAX [Suspect]
     Active Substance: DORIPENEM MONOHYDRATE
     Indication: PNEUMONIA
     Dosage: 1.5 G, QD
     Route: 041
     Dates: start: 20150223, end: 20150302
  5. NEUART [Concomitant]
     Indication: DISSEMINATED INTRAVASCULAR COAGULATION
     Route: 042
     Dates: start: 20150223, end: 20150224
  6. RECOMODULIN [Concomitant]
     Active Substance: THROMBOMODULIN ALFA
     Indication: DISSEMINATED INTRAVASCULAR COAGULATION
     Dosage: 6400 IU, QD
     Route: 041
     Dates: start: 20150223, end: 20150224

REACTIONS (2)
  - Severe acute respiratory syndrome [Fatal]
  - Pancytopenia [Not Recovered/Not Resolved]

NARRATIVE: CASE EVENT DATE: 20150302
